FAERS Safety Report 17109458 (Version 1)
Quarter: 2019Q4

REPORT INFORMATION
  Report Type: Spontaneous
  Country: DK (occurrence: DK)
  Receive Date: 20191204
  Receipt Date: 20191204
  Transmission Date: 20200122
  Serious: Yes (Death)
  Sender: FDA-Public Use
  Company Number: DK-ALLERGAN-1948985US

PATIENT
  Sex: Female

DRUGS (1)
  1. CEFTAZIDIME;AVIBACTAM - BP [Suspect]
     Active Substance: AVIBACTAM SODIUM\CEFTAZIDIME
     Indication: PSEUDOMONAS INFECTION
     Route: 065

REACTIONS (3)
  - Product administered to patient of inappropriate age [Unknown]
  - Death [Fatal]
  - Off label use [Unknown]
